FAERS Safety Report 6905270-3 (Version None)
Quarter: 2010Q3

REPORT INFORMATION
  Report Type: 
  Country: None (occurrence: None)
  Receive Date: 20100804
  Receipt Date: 20100727
  Transmission Date: 20110219
  Serious: Yes (Hospitalization)
  Sender: FDA-Public Use
  Company Number: US-JNJFOC-20100708413

PATIENT
  Age: 63 Year
  Sex: Male
  Weight: 103.42 kg

DRUGS (8)
  1. DURAGESIC-100 [Suspect]
     Indication: BACK PAIN
     Dosage: 33.333 MCG(100 MCG,1 IN 3 DAYS)
     Route: 065
  2. UNSPECIFIED GENERIC DRUG [Suspect]
     Indication: COGNITIVE DISORDER
     Dosage: WEEK 1-5MG IN AM
     Route: 065
  3. UNSPECIFIED GENERIC DRUG [Suspect]
     Dosage: WEEK 4-24- 10MG IN AM AND 10MG PM
     Route: 065
  4. UNSPECIFIED GENERIC DRUG [Suspect]
     Dosage: WEEK 2-5MG IN AM AND 5MG IN PM
     Route: 065
  5. UNSPECIFIED GENERIC DRUG [Suspect]
     Dosage: WEEK 3  10MG IN AM AND 5MG IN PM
     Route: 065
  6. RADIOTHERAPY [Suspect]
     Indication: RADIOTHERAPY
     Dosage: (QD, 5 DAYS A WEEK, X 3 WEEKS)
     Route: 065
  7. OXYCONTIN [Concomitant]
     Dosage: 40MG,I1 IN 12 HOUR
     Route: 065
  8. OXYCODONE HCL [Concomitant]
     Dosage: 20 MG 1 IN 3 HOUR
     Route: 065

REACTIONS (3)
  - ATRIAL FIBRILLATION [None]
  - BACK PAIN [None]
  - CONSTIPATION [None]
